FAERS Safety Report 9189369 (Version 5)
Quarter: 2013Q4

REPORT INFORMATION
  Report Type: Report from Study
  Country: BR (occurrence: BR)
  Receive Date: 20130326
  Receipt Date: 20131022
  Transmission Date: 20140711
  Serious: Yes (Other)
  Sender: FDA-Public Use
  Company Number: PHHY2013BR028538

PATIENT
  Sex: Female
  Weight: 64 kg

DRUGS (1)
  1. FORASEQ [Suspect]
     Indication: BRONCHIAL DISORDER
     Dosage: 1 DF, BID
     Dates: start: 201211

REACTIONS (2)
  - Lung neoplasm malignant [Unknown]
  - Device malfunction [Unknown]
